FAERS Safety Report 4332093-4 (Version None)
Quarter: 2004Q2

REPORT INFORMATION
  Report Type: 
  Country: None (occurrence: None)
  Receive Date: 20040405
  Receipt Date: 20040323
  Transmission Date: 20050107
  Serious: Yes (Hospitalization)
  Sender: FDA-Public Use
  Company Number: US-GLAXOSMITHKLINE-A0396778C

PATIENT
  Age: 77 Year
  Sex: Female
  Weight: 81.6 kg

DRUGS (4)
  1. SALMETEROL [Suspect]
     Dosage: 50MCG TWICE PER DAY
     Route: 055
     Dates: start: 20021016
  2. VENTOLIN [Concomitant]
  3. ADALAT [Concomitant]
  4. CELEBREX [Concomitant]

REACTIONS (4)
  - CHRONIC OBSTRUCTIVE AIRWAYS DISEASE EXACERBATED [None]
  - DYSPNOEA EXACERBATED [None]
  - HEART RATE INCREASED [None]
  - PYREXIA [None]
